FAERS Safety Report 5960062-7 (Version None)
Quarter: 2008Q4

REPORT INFORMATION
  Report Type: 
  Country: None (occurrence: None)
  Receive Date: 20081119
  Receipt Date: 20081119
  Transmission Date: 20090506
  Serious: Yes (Hospitalization)
  Sender: FDA-Public Use
  Company Number: None

PATIENT
  Sex: Female
  Weight: 44.0443 kg

DRUGS (7)
  1. DIDANOSINE [Suspect]
     Indication: URTICARIA
     Dosage: 125 MG PO QD
     Route: 048
  2. BACTRIM [Concomitant]
  3. KEPPRA [Concomitant]
  4. LABETOL [Concomitant]
  5. PAROXETINE HCL [Concomitant]
  6. SEVELAMAR [Concomitant]
  7. CINACALCET [Concomitant]

REACTIONS (1)
  - PANCREATITIS [None]
